FAERS Safety Report 8880759 (Version 1)
Quarter: 2012Q4

REPORT INFORMATION
  Report Type: 
  Country: GB (occurrence: GB)
  Receive Date: 20121101
  Receipt Date: 20121101
  Transmission Date: 20130627
  Serious: Yes (Life-Threatening, Hospitalization)
  Sender: FDA-Public Use
  Company Number: GB-GLAXOSMITHKLINE-B0839829A

PATIENT
  Age: 27 Year
  Sex: Male
  Weight: 75 kg

DRUGS (4)
  1. BUPROPION [Suspect]
     Indication: DEPRESSION
     Dosage: 150MG Per day
     Route: 048
     Dates: start: 20120509, end: 20120602
  2. ESCITALOPRAM [Concomitant]
  3. MIRTAZAPINE [Concomitant]
  4. LAMOTRIGINE [Concomitant]

REACTIONS (3)
  - Convulsion [Recovered/Resolved]
  - Intentional overdose [Recovered/Resolved]
  - Dependence [Unknown]
